FAERS Safety Report 6370038-6 (Version None)
Quarter: 2009Q3

REPORT INFORMATION
  Report Type: 
  Country: None (occurrence: None)
  Receive Date: 20090923
  Receipt Date: 20070514
  Transmission Date: 20100115
  Serious: Yes (Other)
  Sender: FDA-Public Use
  Company Number: US-ASTRAZENECA-2006UW07819

PATIENT
  Age: 627 Month
  Sex: Female

DRUGS (22)
  1. SEROQUEL [Suspect]
     Indication: DEPRESSION
     Dosage: 25-100 MG
     Route: 048
     Dates: start: 19970701, end: 20051001
  2. SEROQUEL [Suspect]
     Indication: ANXIETY
     Dosage: 25-100 MG
     Route: 048
     Dates: start: 19970701, end: 20051001
  3. SEROQUEL [Suspect]
     Dosage: 25-150 MG
     Route: 048
     Dates: start: 20000525
  4. SEROQUEL [Suspect]
     Dosage: 25-150 MG
     Route: 048
     Dates: start: 20000525
  5. HALDOL [Concomitant]
     Route: 065
     Dates: start: 19760101, end: 19800101
  6. NAVANE [Concomitant]
     Route: 065
  7. STELAZINE [Concomitant]
     Route: 065
  8. LEVOXYL [Concomitant]
     Route: 065
  9. ESTRACE [Concomitant]
     Dosage: 2 MG- 10 MG
     Route: 065
  10. PROZAC [Concomitant]
     Dosage: 20 MG-80 MG
     Route: 048
  11. COZAAR [Concomitant]
     Route: 065
  12. METOCLOPRAMIDE [Concomitant]
     Route: 065
  13. AMBIEN [Concomitant]
     Route: 065
  14. PREVACID [Concomitant]
     Route: 065
  15. METOPROLOL TARTRATE [Concomitant]
     Dosage: 50 - 100 MG
     Route: 065
  16. IMURAN [Concomitant]
     Route: 065
  17. DIFLUCAN [Concomitant]
     Route: 048
  18. PHENAZOPYRIDINE HCL TAB [Concomitant]
     Route: 048
  19. COLESTID [Concomitant]
     Route: 048
  20. PREDNISONE TAB [Concomitant]
     Dosage: 1 MG - 10 MG
     Route: 048
  21. DILTIAZEM [Concomitant]
     Dosage: 180 MG-250 MG
     Route: 048
  22. DICYCLOMINE [Concomitant]
     Route: 048

REACTIONS (2)
  - TARDIVE DYSKINESIA [None]
  - TYPE 2 DIABETES MELLITUS [None]
